FAERS Safety Report 5673425-4 (Version None)
Quarter: 2008Q1

REPORT INFORMATION
  Report Type: 
  Country: None (occurrence: None)
  Receive Date: 20080319
  Receipt Date: 20080128
  Transmission Date: 20080703
  Serious: Yes (Death)
  Sender: FDA-Public Use
  Company Number: US-TYCO HEALTHCARE/MALLINCKRODT-T200800430

PATIENT

DRUGS (9)
  1. MORPHINE [Suspect]
     Route: 048
  2. BENZODIAZEPINE DERIVATIVES [Suspect]
     Route: 048
  3. THIAZOLIDINEDIONE [Suspect]
     Route: 048
  4. THYROID PREPARATIONS [Suspect]
     Route: 048
  5. FUROSEMIDE [Suspect]
     Route: 048
  6. QUINAPRIL HCL [Suspect]
     Route: 048
  7. PRAVASTATIN [Suspect]
     Route: 048
  8. PREGABALIN [Suspect]
     Route: 048
  9. BACLOFEN [Suspect]
     Route: 048

REACTIONS (1)
  - DEATH [None]
